FAERS Safety Report 7242965-9 (Version None)
Quarter: 2011Q1

REPORT INFORMATION
  Report Type: 
  Country: None (occurrence: None)
  Receive Date: 20110125
  Receipt Date: 20110118
  Transmission Date: 20110831
  Serious: Yes (Hospitalization)
  Sender: FDA-Public Use
  Company Number: JP-JNJFOC-20101206875

PATIENT
  Sex: Female

DRUGS (4)
  1. UNKNOWN MEDICATION [Concomitant]
     Route: 065
  2. FENTANYL [Suspect]
     Indication: METASTASES TO BONE
     Route: 062
  3. OXINORM [Concomitant]
     Route: 048
  4. FENTANYL [Suspect]
     Route: 062

REACTIONS (3)
  - CONDITION AGGRAVATED [None]
  - BLOOD PRESSURE INCREASED [None]
  - INAPPROPRIATE SCHEDULE OF DRUG ADMINISTRATION [None]
